FAERS Safety Report 16558523 (Version 3)
Quarter: 2019Q3

REPORT INFORMATION
  Report Type: Spontaneous
  Country: JP (occurrence: JP)
  Receive Date: 20190711
  Receipt Date: 20190802
  Transmission Date: 20191004
  Serious: Yes (Life-Threatening, Hospitalization, Other)
  Sender: FDA-Public Use
  Company Number: JP-ASTELLAS-2019JP012051

PATIENT
  Age: 86 Year
  Sex: Male

DRUGS (1)
  1. XTANDI [Suspect]
     Active Substance: ENZALUTAMIDE
     Indication: PROSTATE CANCER
     Route: 048
     Dates: start: 20190606

REACTIONS (4)
  - Hyponatraemia [Recovered/Resolved]
  - Prescribed underdose [Unknown]
  - Fall [Not Recovered/Not Resolved]
  - Spinal cord injury [Not Recovered/Not Resolved]

NARRATIVE: CASE EVENT DATE: 20190606
